FAERS Safety Report 18173985 (Version 1)
Quarter: 2020Q3

REPORT INFORMATION
  Report Type: Report from Study
  Country: US (occurrence: US)
  Receive Date: 20200820
  Receipt Date: 20200820
  Transmission Date: 20201103
  Serious: Yes (Hospitalization)
  Sender: FDA-Public Use
  Company Number: US-MYLANLABS-2020M1072619

PATIENT
  Age: 73 Year
  Sex: Female
  Weight: 92.9 kg

DRUGS (10)
  1. BOSUTINIB [Suspect]
     Active Substance: BOSUTINIB
     Indication: CHRONIC MYELOID LEUKAEMIA
     Dosage: 300 MILLIGRAM, QD
     Route: 048
     Dates: start: 20081010, end: 20200219
  2. ATORVASTATIN [Concomitant]
     Active Substance: ATORVASTATIN
     Indication: BLOOD CHOLESTEROL INCREASED
     Dosage: UNK
     Dates: start: 20190603
  3. LASIX [Suspect]
     Active Substance: FUROSEMIDE
     Indication: PLEURAL EFFUSION
     Dosage: UNK, BID
     Route: 042
  4. WELLBUTRIN [Concomitant]
     Active Substance: BUPROPION HYDROCHLORIDE
     Indication: DEPRESSION
     Dosage: UNK
     Dates: start: 20200303
  5. DILTIAZEM. [Concomitant]
     Active Substance: DILTIAZEM
     Indication: ATRIAL FIBRILLATION
     Dosage: UNK
     Dates: start: 20190113, end: 20200215
  6. LOSARTAN. [Suspect]
     Active Substance: LOSARTAN
     Indication: HYPERTENSION
     Dosage: 25 MILLIGRAM, BEDTIME
     Route: 048
     Dates: start: 20141014, end: 20200215
  7. CELEXA                             /01400501/ [Concomitant]
     Active Substance: CELECOXIB
     Indication: DEPRESSION
     Dosage: UNK
     Dates: start: 2005
  8. TORASEMIDE [Suspect]
     Active Substance: TORSEMIDE
     Indication: FLUID RETENTION
     Dosage: 10 MILLIGRAM, QD
     Route: 048
     Dates: start: 20191204, end: 20200215
  9. SYNTHROID [Concomitant]
     Active Substance: LEVOTHYROXINE SODIUM
     Indication: HYPOTHYROIDISM
     Dosage: UNK
     Dates: start: 197701
  10. COUMADIN [Concomitant]
     Active Substance: WARFARIN SODIUM
     Indication: ATRIAL FIBRILLATION
     Dosage: UNK
     Dates: start: 20111111, end: 20200218

REACTIONS (2)
  - Fall [Recovered/Resolved]
  - Pleural effusion [Recovered/Resolved]

NARRATIVE: CASE EVENT DATE: 20200213
